FAERS Safety Report 7886147-6 (Version None)
Quarter: 2011Q4

REPORT INFORMATION
  Report Type: 
  Country: None (occurrence: None)
  Receive Date: 20111102
  Receipt Date: 20110706
  Transmission Date: 20120403
  Serious: No
  Sender: FDA-Public Use
  Company Number: US-AMGEN-USASP2011034351

PATIENT
  Sex: Female

DRUGS (2)
  1. ENBREL [Suspect]
     Indication: PSORIASIS
  2. ENBREL [Suspect]
     Indication: PSORIATIC ARTHROPATHY
     Dates: start: 20110630

REACTIONS (6)
  - OEDEMA PERIPHERAL [None]
  - NECK PAIN [None]
  - FATIGUE [None]
  - LOCAL SWELLING [None]
  - HYPERTENSION [None]
  - PAIN IN EXTREMITY [None]
